FAERS Safety Report 21213595 (Version 1)
Quarter: 2022Q3

REPORT INFORMATION
  Report Type: Spontaneous
  Country: FR (occurrence: FR)
  Receive Date: 20220816
  Receipt Date: 20220816
  Transmission Date: 20221026
  Serious: Yes (Death, Other)
  Sender: FDA-Public Use
  Company Number: FR-AMGEN-FRASP2022137979

PATIENT

DRUGS (2)
  1. BEVACIZUMAB [Suspect]
     Active Substance: BEVACIZUMAB
     Indication: Uveal melanoma
     Route: 065
  2. TEMOZOLOMIDE [Concomitant]
     Active Substance: TEMOZOLOMIDE
     Indication: Uveal melanoma

REACTIONS (5)
  - Death [Fatal]
  - Metastases to liver [Unknown]
  - Uveal melanoma [Unknown]
  - Drug effective for unapproved indication [Unknown]
  - Off label use [Unknown]
